FAERS Safety Report 11977681 (Version 1)
Quarter: 2016Q1

REPORT INFORMATION
  Report Type: Spontaneous
  Country: US (occurrence: US)
  Receive Date: 20160129
  Receipt Date: 20160129
  Transmission Date: 20160526
  Serious: Yes (Hospitalization)
  Sender: FDA-Public Use
  Company Number: US-PFIZER INC-2016050452

PATIENT
  Age: 62 Year
  Sex: Male
  Weight: 117.9 kg

DRUGS (4)
  1. SULFAMETHOXAZOLE AND TRIMETHOPRIM [Interacting]
     Active Substance: SULFAMETHOXAZOLE\TRIMETHOPRIM
     Indication: CULTURE POSITIVE
     Dosage: UNK, 2X/DAY (SULFAMETHOXAZOLE 800, TRIMETHOPRIM 160)
     Route: 048
     Dates: start: 2015, end: 201512
  2. GABAPENTIN. [Interacting]
     Active Substance: GABAPENTIN
     Dosage: 300 MG, UNK
     Dates: start: 2015
  3. REGRANEX [Suspect]
     Active Substance: BECAPLERMIN
     Indication: SKIN ULCER
     Dosage: 0.01%, 1X/DAY
     Route: 061
     Dates: start: 2015, end: 20151204
  4. CIPROFLOXACIN. [Interacting]
     Active Substance: CIPROFLOXACIN
     Indication: CULTURE POSITIVE
     Dosage: 500 MG, UNK
     Dates: start: 2015, end: 201512

REACTIONS (5)
  - Drug effect incomplete [Unknown]
  - Pain of skin [Recovered/Resolved]
  - Muscular weakness [Recovered/Resolved]
  - Blood glucose increased [Recovered/Resolved]
  - Drug interaction [Recovered/Resolved]

NARRATIVE: CASE EVENT DATE: 2015
